FAERS Safety Report 4552272-0 (Version None)
Quarter: 2005Q1

REPORT INFORMATION
  Report Type: 
  Country: None (occurrence: None)
  Receive Date: 20050114
  Receipt Date: 20041015
  Transmission Date: 20050727
  Serious: Yes (Hospitalization)
  Sender: FDA-Public Use
  Company Number: PHFR2004GB03886

PATIENT
  Sex: Female

DRUGS (2)
  1. GLEEVEC [Suspect]
     Indication: CHRONIC MYELOID LEUKAEMIA
     Dosage: UNK, UNK
     Route: 048
  2. IMODIUM [Suspect]
     Indication: DIARRHOEA
     Route: 048

REACTIONS (9)
  - ABDOMINAL ADHESIONS [None]
  - ABDOMINAL PAIN [None]
  - ABSCESS [None]
  - DIARRHOEA [None]
  - INTESTINAL OBSTRUCTION [None]
  - MEDICATION ERROR [None]
  - PELVIC MASS [None]
  - PYREXIA [None]
  - REFUSAL OF TREATMENT BY PATIENT [None]
